FAERS Safety Report 7542841-8 (Version None)
Quarter: 2011Q2

REPORT INFORMATION
  Report Type: 
  Country: None (occurrence: None)
  Receive Date: 20110613
  Receipt Date: 20110606
  Transmission Date: 20111010
  Serious: Yes (Death)
  Sender: FDA-Public Use
  Company Number: US-CELGENEUS-163-21880-11060815

PATIENT
  Sex: Female

DRUGS (3)
  1. MAGNESIUM OXIDE [Concomitant]
     Route: 065
  2. REVLIMID [Suspect]
     Dosage: 15 MILLIGRAM
     Route: 048
     Dates: start: 20090512
  3. CARVEDILOL [Concomitant]
     Route: 065

REACTIONS (1)
  - DEATH [None]
